FAERS Safety Report 9243578 (Version 1)
Quarter: 2013Q1

REPORT INFORMATION
  Report Type: Spontaneous
  Country: US (occurrence: None)
  Receive Date: 20121123
  Receipt Date: 20121123
  Transmission Date: 20140127
  Serious: Yes (Other)
  Sender: FDA-Public Use
  Company Number: 358908

PATIENT
  Age: 55 Year
  Sex: Female
  Weight: 127 kg

DRUGS (4)
  1. VICTOZA [Suspect]
     Indication: TYPE 2 DIABETES MELLITUS
     Route: 058
     Dates: start: 20120627, end: 20120704
  2. LISINOORIL (LISINOPRIL) [Concomitant]
  3. VITAMIN D/00107901/ (ERGOCALCIFEROL) [Concomitant]
  4. BABY ASPIRIN (ACETYLSALICYLIC ACID) [Concomitant]

REACTIONS (1)
  - Hypersensitivity [None]
